FAERS Safety Report 24606013 (Version 1)
Quarter: 2024Q4

REPORT INFORMATION
  Report Type: Report from Study
  Country: BR (occurrence: BR)
  Receive Date: 20241111
  Receipt Date: 20241111
  Transmission Date: 20250114
  Serious: Yes (Death)
  Sender: BIOGEN
  Company Number: BR-BIOGEN-2024BI01289632

PATIENT
  Sex: Male

DRUGS (1)
  1. TYSABRI [Suspect]
     Active Substance: NATALIZUMAB
     Indication: Multiple sclerosis
     Route: 050

REACTIONS (4)
  - Acute respiratory failure [Fatal]
  - Aspiration [Fatal]
  - Intestinal obstruction [Fatal]
  - Multiple sclerosis [Fatal]
